FAERS Safety Report 8285981 (Version 2)
Quarter: 2013Q1

REPORT INFORMATION
  Report Type: Spontaneous
  Country: US (occurrence: None)
  Receive Date: 20111206
  Receipt Date: 20130327
  Transmission Date: 20140127
  Serious: Yes (Other)
  Sender: FDA-Public Use
  Company Number: 2011-4740

PATIENT
  Age: 70 Year
  Sex: Male
  Weight: 104.3 kg

DRUGS (10)
  1. SOMATULINE DEPOT [Suspect]
     Dosage: 60 MG (60 MG, 1 IN 28 D)
     Dates: start: 20110428, end: 201107
  2. LANTUS [Concomitant]
  3. LIPITOR [Concomitant]
  4. CELEBREX [Concomitant]
  5. ASPIRIN (ACETYLSALICYLIC ACID) [Concomitant]
  6. MOVE FREE (GLUCOSAMINE W/CHONDROITIN) [Concomitant]
  7. SKELAXIN [Concomitant]
  8. LORTAB [Concomitant]
  9. ATIVAN [Concomitant]
  10. AMBIEN CR [Concomitant]

REACTIONS (4)
  - HYPERTHYROIDISM [None]
  - PITUITARY TUMOUR RECURRENT [None]
  - MUSCLE SPASMS [None]
  - BLOOD GLUCOSE DECREASED [None]
